FAERS Safety Report 6093754-2 (Version None)
Quarter: 2009Q1

REPORT INFORMATION
  Report Type: 
  Country: None (occurrence: None)
  Receive Date: 20090223
  Receipt Date: 20090223
  Transmission Date: 20090719
  Serious: Yes (Other)
  Sender: FDA-Public Use
  Company Number: None

PATIENT
  Sex: Female
  Weight: 20.4119 kg

DRUGS (2)
  1. SINGULAIR [Suspect]
     Indication: ASTHMA
     Dosage: 1 TABLET EVERY NIGHT PO
     Route: 048
     Dates: start: 20060813, end: 20090221
  2. SINGULAIR [Suspect]
     Indication: MULTIPLE ALLERGIES
     Dosage: 1 TABLET EVERY NIGHT PO
     Route: 048
     Dates: start: 20060813, end: 20090221

REACTIONS (2)
  - ANGER [None]
  - DEPRESSION [None]
